FAERS Safety Report 19405417 (Version 1)
Quarter: 2021Q2

REPORT INFORMATION
  Report Type: Spontaneous
  Country: GR (occurrence: GR)
  Receive Date: 20210611
  Receipt Date: 20210611
  Transmission Date: 20210717
  Serious: Yes (Hospitalization, Other)
  Sender: FDA-Public Use
  Company Number: GR-ACCORD-227674

PATIENT
  Age: 80 Year
  Sex: Male

DRUGS (10)
  1. METFORMIN [Interacting]
     Active Substance: METFORMIN HYDROCHLORIDE
     Indication: DIABETES MELLITUS
     Dosage: UNK
     Route: 065
  2. CLARITHROMYCIN. [Interacting]
     Active Substance: CLARITHROMYCIN
     Indication: PYREXIA
     Dosage: UNK
  3. OLMESARTAN [Interacting]
     Active Substance: OLMESARTAN
     Indication: HYPERTENSION
  4. OLMESARTAN [Interacting]
     Active Substance: OLMESARTAN
     Indication: HYPERTENSION
  5. HYDROCHLOROTHIAZIDE. [Suspect]
     Active Substance: HYDROCHLOROTHIAZIDE
     Indication: HYPERTENSION
     Route: 065
  6. SIMVASTATIN. [Interacting]
     Active Substance: SIMVASTATIN
     Indication: DYSLIPIDAEMIA
  7. AMLODIPINE [Concomitant]
     Active Substance: AMLODIPINE BESYLATE
     Indication: HYPERTENSION
     Dosage: UNK
     Route: 065
  8. KLARICID [Interacting]
     Active Substance: CLARITHROMYCIN
     Indication: PYREXIA
     Dosage: UNK
  9. AMLODIPINE\HYDROCHLOROTHIAZIDE\OLMESARTAN [Interacting]
     Active Substance: AMLODIPINE\HYDROCHLOROTHIAZIDE\OLMESARTAN
     Indication: HYPERTENSION
     Dosage: UNK
  10. VILDAGLIPTIN [Interacting]
     Active Substance: VILDAGLIPTIN
     Indication: DIABETES MELLITUS
     Dosage: UNK
     Route: 065

REACTIONS (10)
  - Renal impairment [Recovered/Resolved]
  - Hyperkalaemia [Recovered/Resolved]
  - Intentional product misuse [Unknown]
  - Drug interaction [Unknown]
  - Discomfort [Unknown]
  - Fatigue [Unknown]
  - Rhabdomyolysis [Recovering/Resolving]
  - Chromaturia [Recovered/Resolved]
  - Hepatic function abnormal [Recovering/Resolving]
  - Pyrexia [Recovered/Resolved]
